FAERS Safety Report 7725938-9 (Version None)
Quarter: 2011Q3

REPORT INFORMATION
  Report Type: 
  Country: None (occurrence: None)
  Receive Date: 20110902
  Receipt Date: 20110901
  Transmission Date: 20111222
  Serious: Yes (Hospitalization)
  Sender: FDA-Public Use
  Company Number: JP-ABBOTT-11P-087-0843770-00

PATIENT
  Sex: Male

DRUGS (5)
  1. HUMIRA [Suspect]
     Dates: start: 20100728, end: 20101215
  2. MAXACALCITOL [Concomitant]
     Indication: PSORIASIS
     Dosage: 2 CUBIC CENTIMETER DAILY
     Route: 061
     Dates: start: 20100716, end: 20100811
  3. HUMIRA [Suspect]
     Indication: PSORIASIS
     Route: 058
     Dates: start: 20100713, end: 20100713
  4. DIFLUCORTOLONE VALERATE [Concomitant]
     Indication: PSORIASIS
     Dosage: 5 GRAM DAILY
     Route: 061
     Dates: start: 20100715, end: 20100811
  5. HUMIRA [Suspect]
     Dates: start: 20110318

REACTIONS (2)
  - ROTATOR CUFF SYNDROME [None]
  - ACNE [None]
